FAERS Safety Report 7050131-5 (Version None)
Quarter: 2010Q4

REPORT INFORMATION
  Report Type: 
  Country: None (occurrence: None)
  Receive Date: 20101018
  Receipt Date: 20101013
  Transmission Date: 20110411
  Serious: Yes (Other)
  Sender: FDA-Public Use
  Company Number: US-MERCK-1008USA03839

PATIENT
  Age: 43 Month
  Sex: Male
  Weight: 16 kg

DRUGS (5)
  1. SINGULAIR [Suspect]
     Indication: HYPERSENSITIVITY
     Route: 048
     Dates: start: 20100414, end: 20100424
  2. SINGULAIR [Suspect]
     Indication: ASTHMA
     Route: 048
     Dates: start: 20100414, end: 20100424
  3. XYZAL [Concomitant]
     Indication: HYPERSENSITIVITY
     Route: 048
     Dates: start: 20100412
  4. FLONASE [Concomitant]
     Indication: RHINITIS ALLERGIC
     Route: 055
     Dates: start: 20090429
  5. PROBIOTICS (UNSPECIFIED) [Concomitant]
     Route: 048

REACTIONS (6)
  - ABNORMAL BEHAVIOUR [None]
  - ANGER [None]
  - HOMICIDAL IDEATION [None]
  - INITIAL INSOMNIA [None]
  - INTENTIONAL SELF-INJURY [None]
  - SUICIDAL IDEATION [None]
